FAERS Safety Report 10200990 (Version 2)
Quarter: 2014Q2

REPORT INFORMATION
  Report Type: Report from Study
  Country: US (occurrence: US)
  Receive Date: 20140528
  Receipt Date: 20140616
  Transmission Date: 20141212
  Serious: Yes (Hospitalization)
  Sender: FDA-Public Use
  Company Number: PHEH2014US010612

PATIENT
  Sex: Male
  Weight: 52.61 kg

DRUGS (14)
  1. TASIGNA [Suspect]
     Indication: CHRONIC MYELOID LEUKAEMIA
     Dosage: 200 MG, Q12H
  2. AMLODIPIN//AMLODIPINE [Concomitant]
     Dosage: 2.5 MG, UNK
  3. PREDNISONE [Concomitant]
     Dosage: 1 MG, UNK
  4. ATENOLOL [Concomitant]
     Dosage: 25 MG, UNK
  5. OMEPRAZOLE [Concomitant]
     Dosage: 20 MG, UNK
  6. ALBUTEROL [Concomitant]
     Dosage: 80 UG, UNK
  7. GABAPENTIN [Concomitant]
     Dosage: 100 MG, UNK
  8. PLAVIX [Concomitant]
     Dosage: 75 MG, UNK
  9. ATORVASTATIN [Concomitant]
     Dosage: 80 MG, UNK
  10. MAGNESIUM [Concomitant]
     Dosage: 400 MG, UNK
  11. IRON [Concomitant]
  12. CARBIDOPA [Concomitant]
     Dosage: 25 MG, UNK
  13. LISINOPRIL AND HYDROCHLORTIAZIDE [Concomitant]
     Dosage: 25/20 MG, UNK
  14. HYDROCODONE W/APAP [Concomitant]
     Dosage: 5/500 MG, UNK

REACTIONS (4)
  - Chronic obstructive pulmonary disease [Recovering/Resolving]
  - Cardiac failure congestive [Unknown]
  - Pneumonia [Recovering/Resolving]
  - Epistaxis [Unknown]
